FAERS Safety Report 5748111-2 (Version None)
Quarter: 2008Q2

REPORT INFORMATION
  Report Type: 
  Country: None (occurrence: None)
  Receive Date: 20080523
  Receipt Date: 20080516
  Transmission Date: 20081010
  Serious: Yes (Hospitalization, Other)
  Sender: FDA-Public Use
  Company Number: US-ABBOTT-08P-163-0448103-00

PATIENT
  Sex: Female
  Weight: 54.48 kg

DRUGS (27)
  1. HUMIRA [Suspect]
     Indication: RHEUMATOID ARTHRITIS
     Route: 058
     Dates: start: 20040101, end: 20080408
  2. HUMIRA [Suspect]
     Indication: PSORIATIC ARTHROPATHY
  3. DILTIAZEM HYDROCHLORIDE [Concomitant]
     Indication: CARDIAC DISORDER
     Route: 048
     Dates: start: 19920101
  4. PREDNISONE TAB [Concomitant]
     Indication: ARTHRITIS
     Dosage: 5 MG, 3 BEFORE BEDTIME
     Route: 048
     Dates: start: 19820101, end: 20080408
  5. PREDNISONE TAB [Concomitant]
     Dates: start: 20080408
  6. SOTALOL HCL [Concomitant]
     Indication: DRUG USE FOR UNKNOWN INDICATION
  7. ROPINIROLE HCL [Concomitant]
     Indication: MUSCLE SPASMS
     Dosage: 0.5 MG LATE AFTERNOON, 1 MG BEFORE BEDTIME
     Route: 048
  8. PANTOPRAZOLE SODIUM [Concomitant]
     Indication: DRUG USE FOR UNKNOWN INDICATION
     Dosage: 40 MG, 1 IN AM, 1 BEFORE BED
     Route: 048
  9. SPIRONOLACTONE [Concomitant]
     Indication: CARDIAC OPERATION
     Route: 048
     Dates: start: 19950101
  10. ROSERUM [Concomitant]
     Indication: INSOMNIA
     Route: 048
     Dates: start: 20060101
  11. ACETYLSALICYLIC ACID SRT [Concomitant]
     Indication: CARDIAC DISORDER
     Route: 048
     Dates: start: 19950101
  12. TRAZODONE HCL [Concomitant]
     Indication: DRUG USE FOR UNKNOWN INDICATION
     Route: 048
     Dates: start: 20030101
  13. POTASSIUM CHLORIDE [Concomitant]
     Indication: MINERAL SUPPLEMENTATION
     Route: 048
  14. FUROSEMIDE [Concomitant]
     Indication: FLUID RETENTION
     Route: 048
  15. TYLOX [Concomitant]
     Indication: PAIN
     Dosage: 10/325 MG
  16. ALPRAZOLAM [Concomitant]
     Indication: ANXIETY
     Dosage: 1 MG UP TO 4 ME A DAY, USUALLY 1 OR 2 MG A DAY
     Route: 048
  17. ASCORBIC ACID [Concomitant]
     Indication: DRUG USE FOR UNKNOWN INDICATION
     Route: 048
  18. NICOTINAM. W/PYRIDOXI. HCL/RIBOFL./THIAM. HCL [Concomitant]
     Indication: DRUG USE FOR UNKNOWN INDICATION
  19. GLUCOSAMINE W/CHONDROITIN SULFATE [Concomitant]
     Indication: MINERAL SUPPLEMENTATION
     Dosage: 15 MG AND 1200 MG
  20. METHYLSULFONYLMETHANE [Concomitant]
     Indication: DRUG USE FOR UNKNOWN INDICATION
  21. CALCIUM-SANDOZ [Concomitant]
     Indication: DRUG USE FOR UNKNOWN INDICATION
  22. MAGNESIUM HYDROXIDE TAB [Concomitant]
     Indication: DRUG USE FOR UNKNOWN INDICATION
  23. ZINC [Concomitant]
     Indication: DRUG USE FOR UNKNOWN INDICATION
  24. MILK THISTLE [Concomitant]
     Indication: DRUG USE FOR UNKNOWN INDICATION
  25. VITIS VINIFERA SEED [Concomitant]
     Indication: DRUG USE FOR UNKNOWN INDICATION
  26. UBIDECARENONE [Concomitant]
     Indication: FREE FATTY ACIDS
  27. RECLAST [Concomitant]
     Indication: OSTEOPOROSIS
     Route: 042

REACTIONS (11)
  - ANAEMIA [None]
  - BRONCHITIS [None]
  - FALL [None]
  - FEMUR FRACTURE [None]
  - HAEMORRHAGE [None]
  - HEAD INJURY [None]
  - KNEE ARTHROPLASTY [None]
  - LOCALISED INFECTION [None]
  - MALAISE [None]
  - RIB FRACTURE [None]
  - SCRATCH [None]
